FAERS Safety Report 23565141 (Version 1)
Quarter: 2024Q1

REPORT INFORMATION
  Report Type: Spontaneous
  Country: US (occurrence: US)
  Receive Date: 20240226
  Receipt Date: 20240226
  Transmission Date: 20240409
  Serious: No
  Sender: FDA-Public Use
  Company Number: US-Dermavant-000994

PATIENT
  Age: 26 Year

DRUGS (1)
  1. VTAMA [Suspect]
     Active Substance: TAPINAROF
     Indication: Psoriasis
     Dates: start: 202310

REACTIONS (2)
  - Inappropriate schedule of product administration [Recovered/Resolved]
  - Migraine [Not Recovered/Not Resolved]
